FAERS Safety Report 26213114 (Version 1)
Quarter: 2025Q4

REPORT INFORMATION
  Report Type: Spontaneous
  Country: EU (occurrence: EU)
  Receive Date: 20251230
  Receipt Date: 20251230
  Transmission Date: 20260117
  Serious: Yes (Other)
  Sender: ABBVIE
  Company Number: None

PATIENT
  Age: 46 Year
  Sex: Female
  Weight: 55 kg

DRUGS (8)
  1. DEXAMETHASONE [Suspect]
     Active Substance: DEXAMETHASONE
     Indication: Headache
     Dosage: ADMINISTERED ACCORDING TO THE INITIALLY PRESCRIBED DOSAGE SINGLE DOSE?DEXAMETASONA KABI
     Route: 065
     Dates: start: 20251106, end: 20251106
  2. ACETAMINOPHEN [Concomitant]
     Active Substance: ACETAMINOPHEN
     Indication: Product used for unknown indication
     Dosage: 1 TABLET AS NEEDED
  3. TRAMADOL [Concomitant]
     Active Substance: TRAMADOL
     Indication: Product used for unknown indication
     Dosage: 1 TABLET AS NEEDED
  4. NAPROXEN [Concomitant]
     Active Substance: NAPROXEN
     Indication: Product used for unknown indication
     Dosage: 1 TABLET AS NEEDED
  5. GABAPENTIN [Concomitant]
     Active Substance: GABAPENTIN
     Indication: Product used for unknown indication
     Dosage: 1 TABLET TWICE DAILY
  6. LIDOCAINE [Suspect]
     Active Substance: LIDOCAINE
     Indication: Headache
     Dosage: LIDOCAINE FRESENIUS KABI?ADMINISTERED ACCORDING TO THE INITIALLY PRESCRIBED DOSAGE SINGLE DOSE?ST...
     Route: 065
     Dates: start: 20251106, end: 20251106
  7. DIAZEPAM [Concomitant]
     Active Substance: DIAZEPAM
     Indication: Product used for unknown indication
     Dosage: 1 TABLET TWICE DAILY
  8. ROPIVACAINE HYDROCHLORIDE [Suspect]
     Active Substance: ROPIVACAINE HYDROCHLORIDE
     Indication: Headache
     Dosage: ADMINISTERED ACCORDING TO THE INITIALLY PRESCRIBED DOSAGE SINGLE DOSE?STRENGTH NAME: 2 MG/ML
     Route: 065
     Dates: start: 20251106, end: 20251106

REACTIONS (3)
  - Laryngeal oedema [Recovered/Resolved]
  - Oropharyngeal swelling [Unknown]
  - Oropharyngeal discomfort [Unknown]

NARRATIVE: CASE EVENT DATE: 20250101
